FAERS Safety Report 10078885 (Version 1)
Quarter: 2014Q2

REPORT INFORMATION
  Report Type: Spontaneous
  Country: US (occurrence: US)
  Receive Date: 20140415
  Receipt Date: 20140415
  Transmission Date: 20141212
  Serious: Yes (Hospitalization)
  Sender: FDA-Public Use
  Company Number: US-SA-2014SA041559

PATIENT
  Age: 60 Year
  Sex: Male

DRUGS (2)
  1. LANTUS SOLOSTAR [Suspect]
     Indication: PRODUCT USED FOR UNKNOWN INDICATION
     Dosage: DOSE:30 UNIT(S)
     Route: 065
     Dates: start: 2013
  2. SOLOSTAR [Concomitant]
     Indication: DEVICE THERAPY

REACTIONS (4)
  - Cardiac operation [Unknown]
  - Dyspnoea [Recovering/Resolving]
  - Heart rate increased [Unknown]
  - Hyperhidrosis [Unknown]
